FAERS Safety Report 7533148-3 (Version None)
Quarter: 2011Q2

REPORT INFORMATION
  Report Type: 
  Country: None (occurrence: None)
  Receive Date: 20110608
  Receipt Date: 20090529
  Transmission Date: 20111010
  Serious: Yes (Other)
  Sender: FDA-Public Use
  Company Number: US-BAYER-200923788NA

PATIENT
  Age: 71 Year
  Sex: Male
  Weight: 91 kg

DRUGS (20)
  1. AMIODARONE HCL [Concomitant]
     Dosage: UNK
     Route: 048
     Dates: start: 20060101
  2. ACETYLSALICYLIC ACID SRT [Concomitant]
     Dosage: 81 MG, QD
     Route: 048
  3. CEFAZOLIN [Concomitant]
     Dosage: 1 GRAM
     Route: 042
     Dates: start: 20060414
  4. TRASYLOL [Suspect]
     Dosage: 50 ML/HR FOR FOUR HOURS
     Route: 042
     Dates: start: 20060414, end: 20060415
  5. NEO-SYNEPHRINE [Concomitant]
     Dosage: TITRATE
     Route: 042
     Dates: start: 20060414
  6. LOPRESSOR [Concomitant]
     Dosage: UNK
     Route: 048
     Dates: start: 20060101
  7. WARFARIN SODIUM [Concomitant]
     Dosage: UNK
     Route: 048
     Dates: start: 20060101
  8. HEPARIN [Concomitant]
     Dosage: 38000 UNITS
     Route: 042
     Dates: start: 20060414
  9. NITROGLYCERIN [Concomitant]
     Dosage: AS NEEDED
     Route: 060
  10. NITROSTAT [Concomitant]
  11. SODIUM NITROPRUSSIDE [Concomitant]
     Dosage: UNK
     Route: 042
     Dates: start: 20060414
  12. TRASYLOL [Suspect]
     Indication: AORTIC VALVE REPLACEMENT
     Dosage: 200 ML, ONCE, LOADING DOSE
     Route: 042
     Dates: start: 20060414, end: 20060415
  13. COZAAR [Concomitant]
     Dosage: 100 MG, QD
     Route: 048
  14. HYDRALAZINE HCL [Concomitant]
     Dosage: 25 MG, BID
     Route: 048
  15. DOBUTREX [Concomitant]
     Dosage: TITRATE
     Route: 042
     Dates: start: 20060414
  16. PLASMALYTE [GLUCOSE,POTASSIUM CHLORIDE] [Concomitant]
     Dosage: 500 CC
     Route: 042
     Dates: start: 20060414
  17. PLAVIX [Concomitant]
     Dosage: 75 MG, QD
     Route: 048
     Dates: start: 20060101
  18. NITROGLYCERIN [Concomitant]
     Dosage: UNK
     Route: 042
     Dates: start: 20060414
  19. DIGOXIN [Concomitant]
     Dosage: 0.25 MG, QD
     Route: 048
  20. VERSED [Concomitant]
     Dosage: UNK
     Route: 042
     Dates: start: 20060414

REACTIONS (12)
  - RENAL IMPAIRMENT [None]
  - RENAL INJURY [None]
  - PAIN [None]
  - RENAL FAILURE [None]
  - UNEVALUABLE EVENT [None]
  - EMOTIONAL DISTRESS [None]
  - ANXIETY [None]
  - MULTI-ORGAN FAILURE [None]
  - FEAR [None]
  - INJURY [None]
  - STRESS [None]
  - ANHEDONIA [None]
